FAERS Safety Report 9978403 (Version 1)
Quarter: 2014Q1

REPORT INFORMATION
  Report Type: Spontaneous
  Country: US (occurrence: US)
  Receive Date: 20140306
  Receipt Date: 20140306
  Transmission Date: 20141002
  Serious: No
  Sender: FDA-Public Use
  Company Number: US-ABBVIE-13P-163-1171393-00

PATIENT
  Age: 43 Year
  Sex: Male
  Weight: 108.96 kg

DRUGS (5)
  1. HUMIRA [Suspect]
     Indication: PSORIASIS
     Dates: start: 2010, end: 201304
  2. HUMIRA [Suspect]
     Indication: PSORIATIC ARTHROPATHY
  3. METFORMIN [Concomitant]
     Indication: DIABETES MELLITUS
  4. LISINOPRIL + HIDROCLOROTIAZIDA [Concomitant]
     Indication: HYPERTENSION
  5. ATORVASTATIN [Concomitant]
     Indication: BLOOD TRIGLYCERIDES INCREASED

REACTIONS (3)
  - Arthropathy [Not Recovered/Not Resolved]
  - Psoriasis [Not Recovered/Not Resolved]
  - Arthralgia [Not Recovered/Not Resolved]
